FAERS Safety Report 6955211-8 (Version None)
Quarter: 2010Q3

REPORT INFORMATION
  Report Type: 
  Country: None (occurrence: None)
  Receive Date: 20100830
  Receipt Date: 20100824
  Transmission Date: 20110219
  Serious: Yes (Hospitalization)
  Sender: FDA-Public Use
  Company Number: KR-SANOFI-AVENTIS-2010SA046841

PATIENT
  Age: 50 Year
  Sex: Male
  Weight: 70.6 kg

DRUGS (11)
  1. ELOXATIN [Suspect]
     Indication: METASTATIC GASTRIC CANCER
     Route: 042
     Dates: start: 20100708, end: 20100708
  2. SUNITINIB MALATE [Suspect]
     Indication: METASTATIC GASTRIC CANCER
     Dosage: TWO WEEKS ON, ONE WEEK OFF
     Route: 048
     Dates: start: 20100708, end: 20100716
  3. XELODA [Suspect]
     Indication: METASTATIC GASTRIC CANCER
     Route: 048
     Dates: start: 20100707, end: 20100716
  4. FAMOTIDINE [Concomitant]
     Indication: GASTRODUODENAL ULCER
     Dates: start: 20100706, end: 20100708
  5. GRANISETRON HCL [Concomitant]
     Indication: ANTIEMETIC SUPPORTIVE CARE
     Dates: start: 20100707
  6. LANSOPRAZOLE [Concomitant]
     Indication: GASTRODUODENAL ULCER
     Dates: start: 20100702, end: 20100705
  7. METOCLOPRAMIDE [Concomitant]
     Indication: ANTIEMETIC SUPPORTIVE CARE
     Dates: start: 20100707
  8. CHLORPHENIRAMINE MALEATE [Concomitant]
     Dates: start: 20100708
  9. DEXAMETHASONE [Concomitant]
     Dates: start: 20100708
  10. DEXTROSE [Concomitant]
     Dates: start: 20100708
  11. NORMAL SALINE [Concomitant]
     Dates: start: 20100705, end: 20100705

REACTIONS (2)
  - GASTRIC PERFORATION [None]
  - PERITONITIS [None]
